FAERS Safety Report 19822969 (Version 1)
Quarter: 2021Q3

REPORT INFORMATION
  Report Type: Spontaneous
  Country: JP (occurrence: JP)
  Receive Date: 20210913
  Receipt Date: 20210913
  Transmission Date: 20211014
  Serious: Yes (Hospitalization)
  Sender: FDA-Public Use
  Company Number: JP-ROCHE-2883509

PATIENT
  Age: 63 Year
  Sex: Female
  Weight: 52.3 kg

DRUGS (2)
  1. AVASTIN [Suspect]
     Active Substance: BEVACIZUMAB
     Indication: OVARIAN CANCER
     Route: 041
  2. TOPOTECAN HYDROCHLORIDE. [Concomitant]
     Active Substance: TOPOTECAN HYDROCHLORIDE
     Indication: FALLOPIAN TUBE CANCER
     Dosage: 1.93 MILLIGRAM
     Route: 041
     Dates: start: 20210531, end: 20210701

REACTIONS (1)
  - Ureteric perforation [Not Recovered/Not Resolved]

NARRATIVE: CASE EVENT DATE: 20210702
